FAERS Safety Report 16305100 (Version 1)
Quarter: 2019Q2

REPORT INFORMATION
  Report Type: Spontaneous
  Country: US (occurrence: US)
  Receive Date: 20190510
  Receipt Date: 20190510
  Transmission Date: 20190711
  Serious: Yes (Hospitalization)
  Sender: FDA-Public Use
  Company Number: None

PATIENT
  Age: 61 Year
  Sex: Female

DRUGS (12)
  1. DICLOFENAC/MISOPROSTOL [Concomitant]
     Active Substance: DICLOFENAC SODIUM\MISOPROSTOL
  2. DIAZEPAM. [Concomitant]
     Active Substance: DIAZEPAM
  3. TIZANIDINE. [Concomitant]
     Active Substance: TIZANIDINE
  4. HYDROCHLOROTHIZIDE 25MG [Concomitant]
  5. AIMOVIG [Suspect]
     Active Substance: ERENUMAB-AOOE
  6. HUMIRA [Concomitant]
     Active Substance: ADALIMUMAB
     Dates: start: 20180926
  7. PANTOPRAZOLE 40MG [Concomitant]
     Active Substance: PANTOPRAZOLE SODIUM
  8. EMGALITY [Concomitant]
     Active Substance: GALCANEZUMAB-GNLM
  9. ATORVASTATIN 40MG [Concomitant]
     Active Substance: ATORVASTATIN
  10. FOLIC ACID. [Concomitant]
     Active Substance: FOLIC ACID
  11. GABAPENTIN 600MG [Concomitant]
     Active Substance: GABAPENTIN
  12. TOPIRAMATE 50MG [Concomitant]
     Active Substance: TOPIRAMATE

REACTIONS (3)
  - Cardiac disorder [None]
  - Shock [None]
  - Drug hypersensitivity [None]

NARRATIVE: CASE EVENT DATE: 20190509
